FAERS Safety Report 7745758-9 (Version None)
Quarter: 2011Q3

REPORT INFORMATION
  Report Type: 
  Country: None (occurrence: None)
  Receive Date: 20110913
  Receipt Date: 20110901
  Transmission Date: 20111222
  Serious: Yes (Other)
  Sender: FDA-Public Use
  Company Number: US-US-EMD SERONO, INC.-7078551

PATIENT
  Sex: Female

DRUGS (2)
  1. REBIF [Suspect]
     Indication: RELAPSING-REMITTING MULTIPLE SCLEROSIS
     Route: 058
     Dates: start: 20110602, end: 20110825
  2. REBIF [Suspect]
     Route: 058
     Dates: start: 20110829

REACTIONS (3)
  - CONJUNCTIVAL HAEMORRHAGE [None]
  - HEPATIC ENZYME INCREASED [None]
  - HEADACHE [None]
